APPROVED DRUG PRODUCT: SULFAMETHOXAZOLE AND TRIMETHOPRIM AND PHENAZOPYRIDINE HYDROCHLORIDE
Active Ingredient: PHENAZOPYRIDINE HYDROCHLORIDE; SULFAMETHOXAZOLE; TRIMETHOPRIM
Strength: 200MG,N/A,N/A;N/A,800MG,160MG
Dosage Form/Route: TABLET;ORAL
Application: N021105 | Product #001
Applicant: ABLE LABORATORIES INC
Approved: Jun 26, 2001 | RLD: No | RS: No | Type: DISCN